FAERS Safety Report 25180538 (Version 1)
Quarter: 2025Q2

REPORT INFORMATION
  Report Type: Spontaneous
  Country: GB (occurrence: GB)
  Receive Date: 20250409
  Receipt Date: 20250409
  Transmission Date: 20250716
  Serious: Yes (Other)
  Sender: MYLAN
  Company Number: GB-MHRA-TPP34852009C14467648YC1743703633310

PATIENT
  Age: 12 Year
  Sex: Female
  Weight: 65 kg

DRUGS (12)
  1. SERTRALINE [Suspect]
     Active Substance: SERTRALINE HYDROCHLORIDE
     Indication: Ill-defined disorder
  2. SERTRALINE [Suspect]
     Active Substance: SERTRALINE HYDROCHLORIDE
     Route: 065
  3. SERTRALINE [Suspect]
     Active Substance: SERTRALINE HYDROCHLORIDE
     Route: 065
  4. SERTRALINE [Suspect]
     Active Substance: SERTRALINE HYDROCHLORIDE
  5. ATOMOXETINE [Concomitant]
     Active Substance: ATOMOXETINE
     Indication: Ill-defined disorder
     Dosage: 1 DOSAGE FORM, QD (1 CAPSULE, 1 TIMES PER DAY)
     Dates: start: 20250403
  6. ATOMOXETINE [Concomitant]
     Active Substance: ATOMOXETINE
     Dosage: 1 DOSAGE FORM, QD (1 CAPSULE, 1 TIMES PER DAY)
     Route: 065
     Dates: start: 20250403
  7. ATOMOXETINE [Concomitant]
     Active Substance: ATOMOXETINE
     Dosage: 1 DOSAGE FORM, QD (1 CAPSULE, 1 TIMES PER DAY)
     Route: 065
     Dates: start: 20250403
  8. ATOMOXETINE [Concomitant]
     Active Substance: ATOMOXETINE
     Dosage: 1 DOSAGE FORM, QD (1 CAPSULE, 1 TIMES PER DAY)
     Dates: start: 20250403
  9. PROMETHAZINE HYDROCHLORIDE [Concomitant]
     Active Substance: PROMETHAZINE HYDROCHLORIDE
     Indication: Ill-defined disorder
     Dosage: 1 DOSAGE FORM, BID (1 TABLET, 2 TIMES PER DAY)
     Dates: start: 20250403
  10. PROMETHAZINE HYDROCHLORIDE [Concomitant]
     Active Substance: PROMETHAZINE HYDROCHLORIDE
     Dosage: 1 DOSAGE FORM, BID (1 TABLET, 2 TIMES PER DAY)
     Route: 065
     Dates: start: 20250403
  11. PROMETHAZINE HYDROCHLORIDE [Concomitant]
     Active Substance: PROMETHAZINE HYDROCHLORIDE
     Dosage: 1 DOSAGE FORM, BID (1 TABLET, 2 TIMES PER DAY)
     Route: 065
     Dates: start: 20250403
  12. PROMETHAZINE HYDROCHLORIDE [Concomitant]
     Active Substance: PROMETHAZINE HYDROCHLORIDE
     Dosage: 1 DOSAGE FORM, BID (1 TABLET, 2 TIMES PER DAY)
     Dates: start: 20250403

REACTIONS (2)
  - Agitation [Recovered/Resolved]
  - Emotional distress [Unknown]
